FAERS Safety Report 5034973-3 (Version None)
Quarter: 2006Q2

REPORT INFORMATION
  Report Type: 
  Country: None (occurrence: None)
  Receive Date: 20060519
  Receipt Date: 20060410
  Transmission Date: 20061013
  Serious: No
  Sender: FDA-Public Use
  Company Number: TPA2006A00625

PATIENT
  Age: 75 Year
  Sex: Male
  Weight: 81.6475 kg

DRUGS (3)
  1. ROZEREM [Suspect]
     Indication: INSOMNIA
     Dosage: 8 MG, QHS, PER ORAL
     Route: 048
     Dates: start: 20060409, end: 20060410
  2. PLAVIX (CLOPIDOGREL SULFATE) (75 MILLIGRAM) [Concomitant]
  3. LISINOPRIL (LISINOPRIL) (10 MILLIGRAM) [Concomitant]

REACTIONS (2)
  - EMOTIONAL DISTRESS [None]
  - NIGHTMARE [None]
